FAERS Safety Report 18898856 (Version 1)
Quarter: 2021Q1

REPORT INFORMATION
  Report Type: Spontaneous
  Country: US (occurrence: US)
  Receive Date: 20210215
  Receipt Date: 20210215
  Transmission Date: 20210420
  Serious: No
  Sender: FDA-Public Use
  Company Number: None

PATIENT
  Age: 9 Month
  Sex: Male

DRUGS (2)
  1. SILDENAFIL. [Suspect]
     Active Substance: SILDENAFIL
     Indication: PULMONARY HYPERTENSION
     Dosage: ?          OTHER FREQUENCY:EVERY 8 HOURS;?
     Route: 048
     Dates: start: 20200819
  2. DIGOXIN, EPANED [Concomitant]

REACTIONS (1)
  - Product storage error [None]

NARRATIVE: CASE EVENT DATE: 20210212
